FAERS Safety Report 7878776-0 (Version None)
Quarter: 2011Q4

REPORT INFORMATION
  Report Type: 
  Country: None (occurrence: None)
  Receive Date: 20111028
  Receipt Date: 20111020
  Transmission Date: 20120403
  Serious: Yes (Other)
  Sender: FDA-Public Use
  Company Number: JPI-P-014300

PATIENT
  Age: 39 Year
  Sex: Female
  Weight: 71.6683 kg

DRUGS (7)
  1. XYREM [Suspect]
     Indication: CATAPLEXY
     Dosage: 3 GM 91.5 GM, 2 IN 1 D), ORAL; 9 GM (4.5 GM, 2 IN 1 D), ORAL
     Route: 048
     Dates: start: 20110223, end: 20110101
  2. XYREM [Suspect]
     Indication: CATAPLEXY
     Dosage: 3 GM 91.5 GM, 2 IN 1 D), ORAL; 9 GM (4.5 GM, 2 IN 1 D), ORAL
     Route: 048
     Dates: start: 20110101
  3. SOMA [Concomitant]
  4. HYDROCODONE BITARTRATE [Concomitant]
  5. TRAZODONE HYDROCHLORIDE [Suspect]
     Indication: SLEEP DISORDER
     Dates: end: 20110222
  6. SYNTHROID [Concomitant]
  7. XANAX [Concomitant]

REACTIONS (12)
  - WRIST FRACTURE [None]
  - DYSGEUSIA [None]
  - DENTAL CARIES [None]
  - CONDITION AGGRAVATED [None]
  - ABASIA [None]
  - BACK PAIN [None]
  - INSOMNIA [None]
  - FALL [None]
  - LIGAMENT SPRAIN [None]
  - HAND FRACTURE [None]
  - JOINT INJURY [None]
  - INTERVERTEBRAL DISC DEGENERATION [None]
